FAERS Safety Report 4542331-0 (Version None)
Quarter: 2004Q4

REPORT INFORMATION
  Report Type: 
  Country: None (occurrence: None)
  Receive Date: 20041227
  Receipt Date: 20041209
  Transmission Date: 20050328
  Serious: Yes (Hospitalization)
  Sender: FDA-Public Use
  Company Number: 170507

PATIENT
  Age: 44 Year
  Sex: Female
  Weight: 68.0396 kg

DRUGS (1)
  1. AVONEX [Suspect]
     Indication: MULTIPLE SCLEROSIS
     Dosage: 30 UG; QW; IM
     Route: 030
     Dates: start: 20010901

REACTIONS (15)
  - ADNEXA UTERI MASS [None]
  - DERMOID CYST OF OVARY [None]
  - ENDOMETRIOSIS [None]
  - HAEMANGIOMA [None]
  - HEADACHE [None]
  - HEPATIC LESION [None]
  - INFLUENZA LIKE ILLNESS [None]
  - LIMB DISCOMFORT [None]
  - MYELOPATHY [None]
  - PAIN [None]
  - PAIN IN EXTREMITY [None]
  - SENSORY DISTURBANCE [None]
  - TERATOMA [None]
  - UTERINE LEIOMYOMA [None]
  - UTERINE MASS [None]
